FAERS Safety Report 18758766 (Version 2)
Quarter: 2022Q2

REPORT INFORMATION
  Report Type: 
  Country: None (occurrence: None)
  Receive Date: 20210119
  Receipt Date: 20220519
  Transmission Date: 20220721
  Serious: Yes (Other)
  Sender: FDA-Public Use
  Company Number: None

PATIENT
  Age: 17 Year
  Sex: Female

DRUGS (1)
  1. MYORISAN [Suspect]
     Active Substance: ISOTRETINOIN

REACTIONS (4)
  - Infectious mononucleosis [Recovered/Resolved]
  - Hepatic enzyme increased [Recovered/Resolved]
  - Swelling face [Recovered/Resolved]
  - Nervousness [Unknown]
